FAERS Safety Report 8281434-4 (Version None)
Quarter: 2012Q1

REPORT INFORMATION
  Report Type: 
  Country: None (occurrence: None)
  Receive Date: 20120316
  Receipt Date: 20100802
  Transmission Date: 20120608
  Serious: Yes (Other)
  Sender: FDA-Public Use
  Company Number: PHHY2010US0873

PATIENT
  Age: 52 Year
  Sex: Female

DRUGS (2)
  1. BENICAR (OLMESARTAN MDOXOMIL) [Concomitant]
  2. TEKTURNA [Suspect]
     Indication: HYPERTENSION
     Dosage: 150 MG DAILY, ORAL
     Route: 048

REACTIONS (1)
  - SWELLING FACE [None]
